FAERS Safety Report 20797258 (Version 1)
Quarter: 2022Q2

REPORT INFORMATION
  Report Type: Spontaneous
  Country: US (occurrence: US)
  Receive Date: 20220506
  Receipt Date: 20220506
  Transmission Date: 20220721
  Serious: No
  Sender: FDA-Public Use
  Company Number: US-PFIZER INC-202200081144

PATIENT
  Age: 32 Year
  Sex: Female

DRUGS (10)
  1. XELJANZ [Suspect]
     Active Substance: TOFACITINIB CITRATE
     Dosage: UNK
  2. PREDNISONE [Concomitant]
     Active Substance: PREDNISONE
  3. PANTOPRAZOLE [Concomitant]
     Active Substance: PANTOPRAZOLE
  4. ESCITALOPRAM [Concomitant]
     Active Substance: ESCITALOPRAM OXALATE
  5. PHENTERMINE [Concomitant]
     Active Substance: PHENTERMINE
  6. LIALDA [Concomitant]
     Active Substance: MESALAMINE
  7. ONDANSETRON [Concomitant]
     Active Substance: ONDANSETRON
  8. TOZINAMERAN [Concomitant]
     Active Substance: TOZINAMERAN
  9. FLUAD QUAD [Concomitant]
  10. LEVONORGESTREL [Concomitant]
     Active Substance: LEVONORGESTREL

REACTIONS (1)
  - Feeling abnormal [Unknown]
